FAERS Safety Report 12767881 (Version 1)
Quarter: 2016Q3

REPORT INFORMATION
  Report Type: Spontaneous
  Country: AU (occurrence: AU)
  Receive Date: 20160921
  Receipt Date: 20160921
  Transmission Date: 20161109
  Serious: Yes (Other)
  Sender: FDA-Public Use
  Company Number: AU-PFIZER INC-2016432274

PATIENT
  Sex: Male

DRUGS (2)
  1. PRISTIQ EXTENDED-RELEASE [Suspect]
     Active Substance: DESVENLAFAXINE SUCCINATE
     Dosage: 100 MG, IN THE MORNING
  2. DIABEX [Interacting]
     Active Substance: METFORMIN HYDROCHLORIDE
     Dosage: 2 TABLETS IN THE MORNING, 1 TABLET AT NIGHT

REACTIONS (3)
  - Drug interaction [Unknown]
  - Suicidal ideation [Unknown]
  - Drug ineffective [Unknown]
